FAERS Safety Report 24761119 (Version 2)
Quarter: 2025Q1

REPORT INFORMATION
  Report Type: Spontaneous
  Country: US (occurrence: US)
  Receive Date: 20241220
  Receipt Date: 20250109
  Transmission Date: 20250408
  Serious: Yes (Other)
  Sender: SUNOVION
  Company Number: US-SMPA-2024SPA006415

PATIENT

DRUGS (5)
  1. APTIOM [Suspect]
     Active Substance: ESLICARBAZEPINE ACETATE
     Indication: Epilepsy
     Dosage: 800 MG, HS
     Route: 048
  2. FLUOXETINE [Suspect]
     Active Substance: FLUOXETINE HYDROCHLORIDE
     Route: 065
  3. SERTRALINE [Suspect]
     Active Substance: SERTRALINE HYDROCHLORIDE
     Route: 065
  4. HYDROXYZINE [Suspect]
     Active Substance: HYDROXYZINE HYDROCHLORIDE
     Indication: Insomnia
  5. KLONOPIN [Suspect]
     Active Substance: CLONAZEPAM
     Route: 065

REACTIONS (22)
  - Syncope [Recovered/Resolved]
  - Polyarthritis [Unknown]
  - Vitamin D decreased [Unknown]
  - Headache [Recovering/Resolving]
  - Mood swings [Not Recovered/Not Resolved]
  - Gastrointestinal disorder [Unknown]
  - Blood insulin increased [Unknown]
  - Gastrooesophageal reflux disease [Unknown]
  - Musculoskeletal pain [Not Recovered/Not Resolved]
  - Anxiety disorder [Not Recovered/Not Resolved]
  - Hyperaesthesia [Not Recovered/Not Resolved]
  - Sleep disorder [Recovering/Resolving]
  - Food aversion [Unknown]
  - Acanthosis nigricans [Unknown]
  - Electric shock sensation [Recovering/Resolving]
  - Weight increased [Unknown]
  - Abdominal pain [Unknown]
  - Depression [Unknown]
  - Hypersomnia [Unknown]
  - Gastritis [Unknown]
  - Dizziness [Recovering/Resolving]
  - Product dose omission in error [Unknown]
